FAERS Safety Report 8993513 (Version 2)
Quarter: 2013Q1

REPORT INFORMATION
  Report Type: Spontaneous
  Country: JP (occurrence: JP)
  Receive Date: 20130102
  Receipt Date: 20130107
  Transmission Date: 20140127
  Serious: Yes (Hospitalization)
  Sender: FDA-Public Use
  Company Number: JP-TEVA-378273ISR

PATIENT
  Age: 40 Year
  Sex: Male

DRUGS (3)
  1. CISPLATIN [Suspect]
     Indication: TESTICULAR CANCER METASTATIC
  2. ETOPOSIDE [Suspect]
     Indication: TESTICULAR CANCER METASTATIC
  3. BLEOMYCIN [Suspect]
     Indication: TESTICULAR CANCER METASTATIC

REACTIONS (3)
  - Acute respiratory distress syndrome [Unknown]
  - Pulmonary haemorrhage [Unknown]
  - Bone marrow failure [Unknown]
